FAERS Safety Report 20101922 (Version 8)
Quarter: 2022Q2

REPORT INFORMATION
  Report Type: Spontaneous
  Country: US (occurrence: US)
  Receive Date: 20211123
  Receipt Date: 20220428
  Transmission Date: 20220721
  Serious: No
  Sender: FDA-Public Use
  Company Number: US-GLAXOSMITHKLINE-US2021AMR237983

PATIENT
  Age: 61 Year
  Sex: Female

DRUGS (2)
  1. ZEJULA [Suspect]
     Active Substance: NIRAPARIB
     Indication: Ovarian cancer
     Dosage: 200 MG, QD
     Dates: end: 20211117
  2. ZEJULA [Suspect]
     Active Substance: NIRAPARIB
     Dosage: 100 MG, QD
     Dates: start: 20211214

REACTIONS (9)
  - Nausea [Unknown]
  - Constipation [Unknown]
  - Heart rate increased [Not Recovered/Not Resolved]
  - Feeling cold [Unknown]
  - Dehydration [Unknown]
  - Platelet count decreased [Not Recovered/Not Resolved]
  - Epistaxis [Unknown]
  - Laboratory test abnormal [Unknown]
  - Tachycardia [Unknown]

NARRATIVE: CASE EVENT DATE: 20211101
